FAERS Safety Report 8028123-9 (Version None)
Quarter: 2012Q1

REPORT INFORMATION
  Report Type: 
  Country: None (occurrence: None)
  Receive Date: 20120106
  Receipt Date: 20120104
  Transmission Date: 20120608
  Serious: Yes (Hospitalization)
  Sender: FDA-Public Use
  Company Number: DE-ROCHE-1027552

PATIENT
  Age: 38 Year
  Sex: Female
  Weight: 72 kg

DRUGS (6)
  1. AVASTIN [Suspect]
     Indication: RECTAL CANCER
  2. MIRTAZAPINE [Concomitant]
     Indication: DEPRESSION
     Dates: start: 20110130
  3. MORPHINE SULFATE [Suspect]
     Indication: PRODUCT USED FOR UNKNOWN INDICATION
     Route: 062
  4. PANTOPRAZOLE SODIUM [Concomitant]
     Indication: DYSPEPSIA
     Dates: start: 20110131
  5. LYRICA [Concomitant]
     Indication: DEPRESSION
     Dates: start: 20110130
  6. CITALOPRAM [Concomitant]
     Indication: DEPRESSION
     Dates: start: 20110131

REACTIONS (6)
  - DYSAESTHESIA [None]
  - GENERAL PHYSICAL HEALTH DETERIORATION [None]
  - NAUSEA [None]
  - ANXIETY [None]
  - DRUG WITHDRAWAL SYNDROME [None]
  - PAIN [None]
